FAERS Safety Report 11822129 (Version 1)
Quarter: 2015Q4

REPORT INFORMATION
  Report Type: Spontaneous
  Country: US (occurrence: US)
  Receive Date: 20151210
  Receipt Date: 20151210
  Transmission Date: 20160305
  Serious: Yes (Other)
  Sender: FDA-Public Use
  Company Number: US-LPDUSPRD-20150972

PATIENT

DRUGS (1)
  1. METHYLDOPATE HCL INJECTION, USP (8905-10) [Suspect]
     Active Substance: METHYLDOPATE HYDROCHLORIDE
     Dosage: DOSE NOT PROVIDED
     Route: 065

REACTIONS (1)
  - Drug-induced liver injury [Unknown]
